FAERS Safety Report 4829209-X (Version None)
Quarter: 2005Q4

REPORT INFORMATION
  Report Type: 
  Country: None (occurrence: None)
  Receive Date: 20051028
  Receipt Date: 20051004
  Transmission Date: 20060501
  Serious: Yes (Hospitalization)
  Sender: FDA-Public Use
  Company Number: USA0509108066

PATIENT
  Age: 45 Year
  Sex: Female

DRUGS (2)
  1. SYMBYAX [Suspect]
     Indication: MAJOR DEPRESSION
     Dates: start: 20050613, end: 20050719
  2. PROZAC [Suspect]
     Indication: MAJOR DEPRESSION
     Dates: start: 20050201

REACTIONS (3)
  - DEPRESSION [None]
  - SUICIDAL IDEATION [None]
  - SUICIDE ATTEMPT [None]
